FAERS Safety Report 18343091 (Version 1)
Quarter: 2020Q4

REPORT INFORMATION
  Report Type: Spontaneous
  Country: SI (occurrence: SI)
  Receive Date: 20201005
  Receipt Date: 20201005
  Transmission Date: 20210113
  Serious: Yes (Other)
  Sender: FDA-Public Use
  Company Number: SI-ACCORD-204045

PATIENT
  Age: 67 Year
  Sex: Male
  Weight: 128 kg

DRUGS (11)
  1. LANITOP [Concomitant]
     Active Substance: METILDIGOXIN
     Dosage: STRENGTH: 0,1MG?LONG-TERM THERAPY
  2. OMNIC OCAS [Concomitant]
     Active Substance: TAMSULOSIN HYDROCHLORIDE
     Dosage: STRENGTH;0.4MG,LONG-TERM THERAPY
     Route: 048
  3. METOCLOPRAMIDE. [Concomitant]
     Active Substance: METOCLOPRAMIDE
     Dosage: STRENGHT:10MG,LONG-TERM THERAPY
     Route: 048
  4. TENOX [Concomitant]
     Dosage: STRENGTH:10MG,LONG-TERM THERAPY
     Route: 048
  5. NOLPAZA [Concomitant]
     Active Substance: PANTOPRAZOLE SODIUM
     Dosage: STREGTH:4MG,LONG-TERM THERAPY
     Route: 048
  6. LASIX [Concomitant]
     Active Substance: FUROSEMIDE
     Dosage: STRENGTH:40MG,LONG-TERM THERAPY
     Route: 048
  7. CORYOL [Concomitant]
     Dosage: STRENGTH:25MG,?LONG-TERM THERAPY
     Route: 048
  8. ALLOPURINOL SANDOZ [Concomitant]
     Active Substance: ALLOPURINOL
     Dosage: STRENGTH:100MG,?LONG-TERM THERAPY
     Route: 048
  9. CAPECITABINE ACCORD [Suspect]
     Active Substance: CAPECITABINE
     Indication: COLON CANCER
     Dosage: STRENGTH: 500 MG,2000 MG EVERY 12 HOURS
     Route: 048
     Dates: start: 201912
  10. DORETA [Concomitant]
     Active Substance: ACETAMINOPHEN\TRAMADOL HYDROCHLORIDE
     Dosage: LONG-TERM THERAPY
  11. PRENESSA [Concomitant]
     Active Substance: PERINDOPRIL
     Dosage: STRENGTH:8MG,LONG-TERM THERAPY
     Route: 048

REACTIONS (2)
  - Angina pectoris [Recovered/Resolved]
  - Off label use [Unknown]

NARRATIVE: CASE EVENT DATE: 201912
